FAERS Safety Report 13192360 (Version 1)
Quarter: 2017Q1

REPORT INFORMATION
  Report Type: Spontaneous
  Country: SE (occurrence: None)
  Receive Date: 20170206
  Receipt Date: 20170206
  Transmission Date: 20170428
  Serious: Yes (Other)
  Sender: FDA-Public Use
  Company Number: SE2017K0396SPO

PATIENT
  Age: 64 Year
  Sex: Male

DRUGS (2)
  1. METFORMIN [Concomitant]
     Active Substance: METFORMIN HYDROCHLORIDE
  2. ENALAPRIL KRKA (ENALAPRIL) TABLET [Suspect]
     Active Substance: ENALAPRIL
     Indication: HYPERTENSION
     Dates: start: 201503

REACTIONS (1)
  - Deafness neurosensory [None]

NARRATIVE: CASE EVENT DATE: 201508
